FAERS Safety Report 5038168-9 (Version None)
Quarter: 2006Q2

REPORT INFORMATION
  Report Type: 
  Country: None (occurrence: None)
  Receive Date: 20060622
  Receipt Date: 20060609
  Transmission Date: 20061013
  Serious: Yes (Other)
  Sender: FDA-Public Use
  Company Number: 2006074872

PATIENT
  Age: 67 Year
  Sex: Female

DRUGS (5)
  1. BEXTRA [Suspect]
     Indication: ILL-DEFINED DISORDER
     Dates: start: 20020501
  2. METOPROLOL SUCCINATE [Concomitant]
  3. ISOSORBIDE MONONITRATE [Concomitant]
  4. SENNA (SENNA) [Concomitant]
  5. ALEVE [Concomitant]

REACTIONS (6)
  - AORTIC VALVE INCOMPETENCE [None]
  - ARRHYTHMIA [None]
  - MYOCARDIAL INFARCTION [None]
  - MYOCARDIAL ISCHAEMIA [None]
  - TRICUSPID VALVE INCOMPETENCE [None]
  - VENTRICULAR EXTRASYSTOLES [None]
